FAERS Safety Report 6321467-8 (Version None)
Quarter: 2009Q3

REPORT INFORMATION
  Report Type: 
  Country: None (occurrence: None)
  Receive Date: 20090822
  Receipt Date: 20090123
  Transmission Date: 20100115
  Serious: No
  Sender: FDA-Public Use
  Company Number: US-ABBOTT-09P-163-0499895-00

PATIENT
  Age: 72 Year
  Sex: Female

DRUGS (8)
  1. NIASPAN [Suspect]
     Indication: LOW DENSITY LIPOPROTEIN INCREASED
     Dates: start: 20090121, end: 20090123
  2. BABY ASPRIN [Concomitant]
     Indication: DRUG USE FOR UNKNOWN INDICATION
     Dosage: AT NIGHT
     Dates: start: 20090121, end: 20090123
  3. CHOLESTOFF [Concomitant]
     Indication: LOW DENSITY LIPOPROTEIN INCREASED
     Dosage: UNKNOWN
     Dates: start: 20090124
  4. VFL#3 [Concomitant]
     Indication: DRUG USE FOR UNKNOWN INDICATION
     Dosage: UNKNOWN
  5. SYMBICORT [Concomitant]
     Indication: ASTHMA
     Dosage: UNKNOWN
  6. ASMANEX TWISTHALER [Concomitant]
     Indication: ASTHMA
     Dosage: UNKNOWN
  7. SINGULAIR [Concomitant]
     Indication: ASTHMA
     Dosage: UNKNOWN
  8. NIACIN OVER THE COUNTER [Concomitant]
     Indication: LOW DENSITY LIPOPROTEIN INCREASED
     Dosage: HALF TAB IN AM, HALF TAB IN PM
     Dates: start: 20090124

REACTIONS (3)
  - FEELING HOT [None]
  - INITIAL INSOMNIA [None]
  - SLEEP DISORDER [None]
